FAERS Safety Report 7305960-7 (Version None)
Quarter: 2011Q1

REPORT INFORMATION
  Report Type: 
  Country: None (occurrence: None)
  Receive Date: 20110210
  Receipt Date: 20110131
  Transmission Date: 20110831
  Serious: Yes (Hospitalization, Other)
  Sender: FDA-Public Use
  Company Number: KV201100021

PATIENT
  Age: 45 Year
  Sex: Female

DRUGS (2)
  1. PREDNISOLONE [Suspect]
     Indication: RHEUMATOID ARTHRITIS
     Dosage: 10 MG, QD, 40  MG, QD
     Dates: start: 20080301, end: 20080701
  2. PREDNISOLONE [Suspect]
     Indication: RHEUMATOID ARTHRITIS
     Dosage: 10 MG, QD, 40  MG, QD
     Dates: start: 20080701

REACTIONS (9)
  - SUPRAVENTRICULAR TACHYCARDIA [None]
  - SINUS TACHYCARDIA [None]
  - ATRIOVENTRICULAR BLOCK FIRST DEGREE [None]
  - SICK SINUS SYNDROME [None]
  - ATRIOVENTRICULAR BLOCK SECOND DEGREE [None]
  - SUPRAVENTRICULAR EXTRASYSTOLES [None]
  - ARTERIAL THROMBOSIS [None]
  - SYSTEMIC LUPUS ERYTHEMATOSUS [None]
  - PALPITATIONS [None]
